FAERS Safety Report 17674591 (Version 1)
Quarter: 2020Q2

REPORT INFORMATION
  Report Type: Spontaneous
  Country: US (occurrence: US)
  Receive Date: 20200416
  Receipt Date: 20200416
  Transmission Date: 20200714
  Serious: Yes (Hospitalization)
  Sender: FDA-Public Use
  Company Number: US-TEVA-2020-US-1223452

PATIENT

DRUGS (3)
  1. AJOVY [Suspect]
     Active Substance: FREMANEZUMAB-VFRM
     Indication: MIGRAINE PROPHYLAXIS
     Dosage: FORM STRENGTH: 225 MG / 1.5 ML
     Route: 065
  2. TROKENDI [Suspect]
     Active Substance: TOPIRAMATE
     Route: 065
  3. BOTOX [Suspect]
     Active Substance: ONABOTULINUMTOXINA
     Route: 065

REACTIONS (2)
  - Hospitalisation [Unknown]
  - Drug ineffective [Unknown]
